FAERS Safety Report 7773854-9 (Version None)
Quarter: 2011Q3

REPORT INFORMATION
  Report Type: 
  Country: None (occurrence: None)
  Receive Date: 20110920
  Receipt Date: 20110909
  Transmission Date: 20111222
  Serious: Yes (Other)
  Sender: FDA-Public Use
  Company Number: 2011SP042871

PATIENT
  Age: 74 Year
  Sex: Male

DRUGS (5)
  1. ACETAMINOPHEN [Concomitant]
  2. TAMSULOSIN HCL [Concomitant]
  3. METRONIDAZOLE [Concomitant]
  4. LEVETIRACETAM [Concomitant]
  5. NOXAFIL [Suspect]
     Indication: PRODUCT USED FOR UNKNOWN INDICATION
     Dosage: 400 MG; BID

REACTIONS (2)
  - CEREBRAL FUNGAL INFECTION [None]
  - CONVULSION [None]
